FAERS Safety Report 4505104-0 (Version None)
Quarter: 2004Q4

REPORT INFORMATION
  Report Type: 
  Country: None (occurrence: None)
  Receive Date: 20041119
  Receipt Date: 20041112
  Transmission Date: 20050328
  Serious: Yes (Congenital Anomaly)
  Sender: FDA-Public Use
  Company Number: US-ABBOTT-04P-163-0280647-00

PATIENT
  Sex: Male

DRUGS (1)
  1. DEPAKOTE [Suspect]
     Indication: DRUG EXPOSURE DURING PREGNANCY

REACTIONS (6)
  - CARDIAC MURMUR [None]
  - CONGENITAL ORAL MALFORMATION [None]
  - CONGENITAL PULMONARY VALVE ATRESIA [None]
  - DEPRESSION [None]
  - DISTURBANCE IN ATTENTION [None]
  - HEART DISEASE CONGENITAL [None]
